FAERS Safety Report 21900236 (Version 1)
Quarter: 2023Q1

REPORT INFORMATION
  Report Type: Spontaneous
  Country: US (occurrence: US)
  Receive Date: 20230123
  Receipt Date: 20230123
  Transmission Date: 20230418
  Serious: No
  Sender: FDA-Public Use
  Company Number: US-NOVOPROD-960698

PATIENT
  Age: 64 Year
  Sex: Female

DRUGS (1)
  1. OZEMPIC [Suspect]
     Active Substance: SEMAGLUTIDE
     Indication: Weight decreased
     Dosage: UNK
     Route: 058

REACTIONS (6)
  - Skin exfoliation [Not Recovered/Not Resolved]
  - COVID-19 [Not Recovered/Not Resolved]
  - Asthenia [Not Recovered/Not Resolved]
  - Injection site bruising [Not Recovered/Not Resolved]
  - Dizziness [Not Recovered/Not Resolved]
  - Off label use [Unknown]

NARRATIVE: CASE EVENT DATE: 20220524
